FAERS Safety Report 15095285 (Version 1)
Quarter: 2018Q3

REPORT INFORMATION
  Report Type: Spontaneous
  Country: IT (occurrence: IT)
  Receive Date: 20180702
  Receipt Date: 20180702
  Transmission Date: 20181010
  Serious: Yes (Life-Threatening, Hospitalization)
  Sender: FDA-Public Use
  Company Number: IT-SUN PHARMACEUTICAL INDUSTRIES LTD-2018RR-177060

PATIENT

DRUGS (13)
  1. GLIVEC [Suspect]
     Active Substance: IMATINIB MESYLATE
     Indication: ACUTE LYMPHOCYTIC LEUKAEMIA
     Dosage: 300 MG, QD
     Route: 048
     Dates: start: 20120508, end: 20120527
  2. GLIVEC [Suspect]
     Active Substance: IMATINIB MESYLATE
     Dosage: 100 MG, QD
     Route: 048
     Dates: start: 20120829, end: 20121027
  3. GLIVEC [Suspect]
     Active Substance: IMATINIB MESYLATE
     Dosage: 300 MG, QD
     Route: 048
     Dates: start: 20120327, end: 20120402
  4. PREDNISONE. [Suspect]
     Active Substance: PREDNISONE
     Indication: PRODUCT USED FOR UNKNOWN INDICATION
     Dosage: 80 MG, QD
     Route: 048
  5. PEG?L?ASPARAGINASE [Suspect]
     Active Substance: PEGASPARGASE
     Indication: PRODUCT USED FOR UNKNOWN INDICATION
     Dosage: 3400UI/DOSE ()
     Route: 048
     Dates: start: 20120331
  6. DESAMETASONE [Suspect]
     Active Substance: DEXAMETHASONE
     Indication: PRODUCT USED FOR UNKNOWN INDICATION
     Dosage: 2.5 MG, QD
     Route: 048
     Dates: start: 20121219
  7. GLIVEC [Suspect]
     Active Substance: IMATINIB MESYLATE
     Dosage: 400 MG, QD
     Route: 048
     Dates: start: 20120624, end: 20120706
  8. ATG [Concomitant]
     Active Substance: LAPINE T-LYMPHOCYTE IMMUNE GLOBULIN
     Indication: PROPHYLAXIS
     Dosage: 3.5 MG/KG, BID
     Route: 065
     Dates: start: 20120824, end: 20120826
  9. RANITIDINE. [Suspect]
     Active Substance: RANITIDINE
     Indication: PRODUCT USED FOR UNKNOWN INDICATION
     Dosage: 300 MG, QD
     Route: 048
     Dates: start: 20120327
  10. GLIVEC [Suspect]
     Active Substance: IMATINIB MESYLATE
     Dosage: 400 MG, QD
     Route: 048
     Dates: start: 20120604, end: 20120617
  11. GLIVEC [Suspect]
     Active Substance: IMATINIB MESYLATE
     Dosage: 300 MG, QD
     Route: 048
     Dates: start: 20120801, end: 20120804
  12. FENOBARBITAL [Concomitant]
     Active Substance: PHENOBARBITAL
     Indication: NERVOUS SYSTEM DISORDER
     Dosage: UNK ()
     Route: 065
     Dates: end: 20130125
  13. FENOFIBRATE. [Suspect]
     Active Substance: FENOFIBRATE
     Indication: PRODUCT USED FOR UNKNOWN INDICATION
     Dosage: 100 MG, QD
     Route: 048
     Dates: start: 20121219

REACTIONS (21)
  - Aplasia [Recovered/Resolved]
  - Mitral valve disease [Recovered/Resolved]
  - Febrile neutropenia [Recovered/Resolved]
  - Dizziness [Recovered/Resolved]
  - Left ventricular dysfunction [Recovered/Resolved]
  - Mucosal inflammation [Recovered/Resolved]
  - Rash erythematous [Recovered/Resolved]
  - Mucosal inflammation [Recovered/Resolved]
  - Respiratory failure [Recovered/Resolved]
  - Pyrexia [Recovered/Resolved]
  - Hepatotoxicity [Recovered/Resolved]
  - Visual impairment [Recovered/Resolved]
  - Escherichia urinary tract infection [Recovered/Resolved]
  - Herpes zoster [Recovered/Resolved]
  - Febrile neutropenia [Recovered/Resolved]
  - Pain [Unknown]
  - Blister [Recovered/Resolved]
  - Pyrexia [Recovered/Resolved]
  - Acute kidney injury [Recovered/Resolved]
  - Pyrexia [Recovered/Resolved]
  - Hypokinesia [Recovered/Resolved]

NARRATIVE: CASE EVENT DATE: 20120401
